FAERS Safety Report 12854582 (Version 1)
Quarter: 2016Q4

REPORT INFORMATION
  Report Type: Spontaneous
  Country: TW (occurrence: TW)
  Receive Date: 20161017
  Receipt Date: 20161017
  Transmission Date: 20170207
  Serious: Yes (Other)
  Sender: FDA-Public Use
  Company Number: TW-INCYTE CORPORATION-2016IN006427

PATIENT

DRUGS (1)
  1. JAKAVI [Suspect]
     Active Substance: RUXOLITINIB
     Indication: PRODUCT USED FOR UNKNOWN INDICATION
     Route: 065

REACTIONS (16)
  - Fatigue [Unknown]
  - Dyspnoea [Unknown]
  - Neutropenia [Unknown]
  - Squamous cell carcinoma of head and neck [Unknown]
  - Nausea [Unknown]
  - Sepsis [Unknown]
  - Headache [Unknown]
  - Seizure [Unknown]
  - Hepatitis B [Recovered/Resolved]
  - Asthenia [Unknown]
  - Anaemia [Unknown]
  - Pneumonia [Unknown]
  - Haemorrhage [Unknown]
  - Thrombocytopenia [Unknown]
  - Oedema [Unknown]
  - Diarrhoea [Unknown]
